FAERS Safety Report 4487757-9 (Version None)
Quarter: 2004Q4

REPORT INFORMATION
  Report Type: 
  Country: None (occurrence: None)
  Receive Date: 20041027
  Receipt Date: 20041027
  Transmission Date: 20050328
  Serious: No
  Sender: FDA-Public Use
  Company Number: None

PATIENT
  Age: 58 Year
  Sex: Male

DRUGS (1)
  1. ERTAPENEM  IV [Suspect]
     Indication: OSTEOMYELITIS
     Dosage: 1 GM IV Q24 HR
     Route: 042

REACTIONS (2)
  - PRURITUS [None]
  - RASH [None]
